FAERS Safety Report 6034413-1 (Version None)
Quarter: 2009Q1

REPORT INFORMATION
  Report Type: 
  Country: None (occurrence: None)
  Receive Date: 20090112
  Receipt Date: 20090109
  Transmission Date: 20090719
  Serious: Yes (Death)
  Sender: FDA-Public Use
  Company Number: A0762892A

PATIENT
  Age: 62 Year
  Sex: Female

DRUGS (1)
  1. SERETIDE [Suspect]
     Route: 055
     Dates: start: 20081202, end: 20081202

REACTIONS (1)
  - CARDIOVASCULAR INSUFFICIENCY [None]
